FAERS Safety Report 4769971-8 (Version None)
Quarter: 2005Q3

REPORT INFORMATION
  Report Type: 
  Country: None (occurrence: None)
  Receive Date: 20050913
  Receipt Date: 20050913
  Transmission Date: 20060218
  Serious: No
  Sender: FDA-Public Use
  Company Number: None

PATIENT

DRUGS (1)
  1. PENTASA [Suspect]
     Dosage: 2 CAPSULES, 250 MG EACH PO
     Route: 048

REACTIONS (1)
  - MEDICATION ERROR [None]
